FAERS Safety Report 16224585 (Version 1)
Quarter: 2019Q2

REPORT INFORMATION
  Report Type: Spontaneous
  Country: FR (occurrence: FR)
  Receive Date: 20190422
  Receipt Date: 20190422
  Transmission Date: 20190711
  Serious: Yes (Hospitalization)
  Sender: FDA-Public Use
  Company Number: FR-MYLANLABS-2019M1036795

PATIENT
  Age: 39 Year
  Sex: Female
  Weight: 65 kg

DRUGS (3)
  1. TERCIAN                            /00759302/ [Concomitant]
     Active Substance: CYAMEMAZINE
     Indication: ANXIETY
     Dosage: UNK
     Route: 048
     Dates: start: 20181027, end: 20181028
  2. HYDROXYZINE MYLAN 25 MG, COMPRIM? PELLICUL? S?CABLE [Suspect]
     Active Substance: HYDROXYZINE HYDROCHLORIDE
     Indication: PRODUCT USED FOR UNKNOWN INDICATION
     Dosage: 4 DOSAGE FORM, QD
     Route: 048
     Dates: start: 20181022, end: 20181031
  3. CEFOTAXIME MYLAN GENERICS [Suspect]
     Active Substance: CEFOTAXIME SODIUM
     Indication: MENINGISM
     Dosage: 2 GRAM, QD
     Route: 048
     Dates: start: 20181022

REACTIONS (1)
  - Neutropenia [Recovering/Resolving]

NARRATIVE: CASE EVENT DATE: 20181026
